FAERS Safety Report 8973195 (Version 1)
Quarter: 2012Q4

REPORT INFORMATION
  Report Type: 
  Country: US (occurrence: US)
  Receive Date: 20121219
  Receipt Date: 20121219
  Transmission Date: 20130627
  Serious: Yes (Other)
  Sender: FDA-Public Use
  Company Number: US-CELGENEUS-163-21660-12121281

PATIENT

DRUGS (3)
  1. ABRAXANE [Suspect]
     Indication: NON-SMALL CELL LUNG CANCER NOS
     Route: 065
  2. ERLOTINIB [Concomitant]
     Indication: DRUG USE FOR UNKNOWN INDICATION
     Dosage: 150 Milligram
     Route: 048
  3. CARBOPLATIN [Concomitant]
     Indication: DRUG USE FOR UNKNOWN INDICATION
     Route: 065

REACTIONS (4)
  - Oesophagitis [Unknown]
  - Neutropenia [Unknown]
  - Diarrhoea [Unknown]
  - Pneumonitis [Unknown]
